FAERS Safety Report 13292067 (Version 4)
Quarter: 2017Q2

REPORT INFORMATION
  Report Type: Spontaneous
  Country: US (occurrence: US)
  Receive Date: 20170303
  Receipt Date: 20170615
  Transmission Date: 20170830
  Serious: Yes (Other)
  Sender: FDA-Public Use
  Company Number: PHEH2017US006502

PATIENT
  Sex: Female
  Weight: 65.76 kg

DRUGS (1)
  1. ZOFRAN [Suspect]
     Active Substance: ONDANSETRON HYDROCHLORIDE
     Indication: HYPEREMESIS GRAVIDARUM
     Dosage: UNK
     Route: 048
     Dates: start: 20051004, end: 20051215

REACTIONS (9)
  - Vaginal haemorrhage [Unknown]
  - Polyhydramnios [Unknown]
  - Injury [Unknown]
  - Product use in unapproved indication [Unknown]
  - Placenta praevia [Unknown]
  - Emotional distress [Unknown]
  - Premature separation of placenta [Unknown]
  - Maternal exposure during pregnancy [Unknown]
  - Premature delivery [Unknown]
